FAERS Safety Report 4980666-8 (Version None)
Quarter: 2006Q2

REPORT INFORMATION
  Report Type: 
  Country: None (occurrence: None)
  Receive Date: 20060424
  Receipt Date: 20060412
  Transmission Date: 20061013
  Serious: Yes (Hospitalization)
  Sender: FDA-Public Use
  Company Number: FR-BRISTOL-MYERS SQUIBB COMPANY-13347166

PATIENT
  Age: 46 Year
  Sex: Female

DRUGS (2)
  1. ABILIFY [Suspect]
     Indication: SCHIZOPHRENIA
     Route: 048
     Dates: start: 20051101, end: 20060301
  2. AUGMENTIN '125' [Concomitant]

REACTIONS (3)
  - COUGH [None]
  - PNEUMONITIS [None]
  - PYREXIA [None]
